FAERS Safety Report 8390513-2 (Version None)
Quarter: 2012Q2

REPORT INFORMATION
  Report Type: 
  Country: None (occurrence: None)
  Receive Date: 20120517
  Receipt Date: 20120509
  Transmission Date: 20120825
  Serious: Yes (Death, Life-Threatening, Hospitalization)
  Sender: FDA-Public Use
  Company Number: 2010SP012552

PATIENT
  Age: 75 Year
  Sex: Male

DRUGS (8)
  1. HEPARIN SODIUM [Concomitant]
  2. PLAVIX [Suspect]
     Indication: ACUTE CORONARY SYNDROME
     Dosage: 600.0 MG;ONCE;PO 75.0 MG;QD;PO
     Route: 048
     Dates: start: 20080503, end: 20080504
  3. HEPARIN [Concomitant]
  4. DIURETICS [Concomitant]
  5. ASPIRIN [Concomitant]
  6. INTEGRILIN [Suspect]
     Indication: PRODUCT USED FOR UNKNOWN INDICATION
     Dosage: IV
     Route: 042
  7. ENOXAPARIN [Concomitant]
  8. PROTAMINE SULFATE [Concomitant]

REACTIONS (8)
  - SEPSIS [None]
  - ISCHAEMIC HEPATITIS [None]
  - CARDIOGENIC SHOCK [None]
  - HAEMATOCRIT DECREASED [None]
  - POST PROCEDURAL HAEMORRHAGE [None]
  - HAEMOGLOBIN DECREASED [None]
  - PLATELET COUNT DECREASED [None]
  - MULTI-ORGAN FAILURE [None]
